FAERS Safety Report 5526697-0 (Version None)
Quarter: 2007Q4

REPORT INFORMATION
  Report Type: 
  Country: None (occurrence: None)
  Receive Date: 20071120
  Receipt Date: 20061206
  Transmission Date: 20080405
  Serious: Yes (Other)
  Sender: FDA-Public Use
  Company Number: 2006150945

PATIENT

DRUGS (1)
  1. TIKOSYN [Suspect]
     Dosage: 500 MCG (250 MCG,2 IN 1 D)

REACTIONS (1)
  - ATRIAL FIBRILLATION [None]
